FAERS Safety Report 6501812-0 (Version None)
Quarter: 2009Q4

REPORT INFORMATION
  Report Type: 
  Country: None (occurrence: None)
  Receive Date: 20091216
  Receipt Date: 20090820
  Transmission Date: 20100525
  Serious: Yes (Hospitalization, Other)
  Sender: FDA-Public Use
  Company Number: US-AMGEN-QUU361075

PATIENT
  Sex: Female

DRUGS (13)
  1. ARANESP [Suspect]
     Indication: RENAL FAILURE CHRONIC
     Dates: start: 20080101
  2. HYDRALAZINE HCL [Concomitant]
  3. DIOVAN [Concomitant]
  4. OMEPRAZOLE [Concomitant]
  5. LABETALOL HCL [Concomitant]
  6. ASCORBIC ACID [Concomitant]
  7. FERROUS SULFATE TAB [Concomitant]
  8. DOCUSATE SODIUM [Concomitant]
  9. ASPIRIN [Concomitant]
  10. ALLOPURINOL [Concomitant]
  11. ALBUTEROL [Concomitant]
  12. SIMVASTATIN [Concomitant]
  13. MICONAZOLE NITRATE [Concomitant]
     Route: 061

REACTIONS (4)
  - CREATININE URINE DECREASED [None]
  - HYPERTENSION [None]
  - PROTEIN URINE PRESENT [None]
  - TRANSIENT ISCHAEMIC ATTACK [None]
